FAERS Safety Report 20689660 (Version 1)
Quarter: 2022Q2

REPORT INFORMATION
  Report Type: Spontaneous
  Country: CN (occurrence: None)
  Receive Date: 20220408
  Receipt Date: 20220408
  Transmission Date: 20220721
  Serious: Yes (Other)
  Sender: FDA-Public Use
  Company Number: 2022A137955

PATIENT
  Age: 11255 Day
  Sex: Female
  Weight: 58 kg

DRUGS (2)
  1. NEXIUM [Suspect]
     Active Substance: ESOMEPRAZOLE MAGNESIUM
     Indication: Acid base balance abnormal
     Route: 048
     Dates: start: 20210215, end: 20210307
  2. NEXIUM [Suspect]
     Active Substance: ESOMEPRAZOLE MAGNESIUM
     Indication: Reflux laryngitis
     Route: 048
     Dates: start: 20210215, end: 20210307

REACTIONS (6)
  - Dyspepsia [Recovering/Resolving]
  - Menstrual disorder [Recovering/Resolving]
  - Gastrooesophageal reflux disease [Recovering/Resolving]
  - Eructation [Recovering/Resolving]
  - Nausea [Recovering/Resolving]
  - Vomiting [Recovering/Resolving]

NARRATIVE: CASE EVENT DATE: 20210222
